FAERS Safety Report 18321893 (Version 1)
Quarter: 2020Q3

REPORT INFORMATION
  Report Type: Spontaneous
  Country: CA (occurrence: CA)
  Receive Date: 20200929
  Receipt Date: 20200929
  Transmission Date: 20201103
  Serious: Yes (Other)
  Sender: FDA-Public Use
  Company Number: CA-ACCORD-202968

PATIENT
  Age: 73 Year
  Sex: Female
  Weight: 80 kg

DRUGS (7)
  1. HYDROCHLOROTHIAZIDE/LOSARTAN POTASSIUM [Concomitant]
     Active Substance: HYDROCHLOROTHIAZIDE\LOSARTAN POTASSIUM
     Route: 048
  2. METOPROLOL. [Concomitant]
     Active Substance: METOPROLOL
     Dosage: EVERY 1 DAYS
     Route: 048
  3. PENTASA [Concomitant]
     Active Substance: MESALAMINE
  4. PENTASA [Concomitant]
     Active Substance: MESALAMINE
     Route: 048
  5. ATORVASTATIN/ATORVASTATIN CALCIUM [Suspect]
     Active Substance: ATORVASTATIN CALCIUM
     Indication: PRODUCT USED FOR UNKNOWN INDICATION
     Route: 048
  6. INFLIXIMAB [Concomitant]
     Active Substance: INFLIXIMAB
     Route: 065
  7. ESOMEPRAZOLE/ESOMEPRAZOLE MAGNESIUM/ESOMEPRAZOLE SODIUM [Suspect]
     Active Substance: ESOMEPRAZOLE
     Indication: PRODUCT USED FOR UNKNOWN INDICATION
     Route: 048

REACTIONS (3)
  - Lung neoplasm malignant [Unknown]
  - Renal cell carcinoma stage IV [Unknown]
  - Weight increased [Unknown]
